FAERS Safety Report 18612181 (Version 5)
Quarter: 2021Q1

REPORT INFORMATION
  Report Type: Report from Study
  Country: TH (occurrence: TH)
  Receive Date: 20201214
  Receipt Date: 20210120
  Transmission Date: 20210419
  Serious: Yes (Hospitalization)
  Sender: FDA-Public Use
  Company Number: TH-EISAI MEDICAL RESEARCH-EC-2020-085132

PATIENT
  Age: 63 Year
  Sex: Male
  Weight: 62.2 kg

DRUGS (18)
  1. FOLIC ACID. [Concomitant]
     Active Substance: FOLIC ACID
     Dates: start: 20190904
  2. METHYL SALICYLATE [Concomitant]
     Active Substance: METHYL SALICYLATE
     Dates: start: 20190925
  3. MILK OF MAGNESIA [Concomitant]
     Active Substance: MAGNESIUM HYDROXIDE
     Dates: start: 20200915
  4. LENVATINIB [Suspect]
     Active Substance: LENVATINIB
     Route: 048
     Dates: start: 20201117
  5. ALUMINUM HYDROXIDE (+) MAGNESIUM HYDROXIDE [Concomitant]
     Active Substance: ALUMINUM HYDROXIDE\MAGNESIUM HYDROXIDE
     Dates: start: 20200804
  6. SIMETHICONE (DIMETHICONE) [Concomitant]
     Active Substance: DIMETHICONE
     Dates: start: 20190829
  7. LENVATINIB [Suspect]
     Active Substance: LENVATINIB
     Indication: HEPATOCELLULAR CARCINOMA
     Dosage: STARTING DOSE AT 12 MG; FLUCTUATED DOSAGE
     Route: 048
     Dates: start: 20190726, end: 20201116
  8. CODEPECT [Concomitant]
     Dates: start: 20190725
  9. TRIAMCINOLONE [Concomitant]
     Active Substance: TRIAMCINOLONE
     Dates: start: 20200309
  10. AMINOLEBAN [Concomitant]
     Active Substance: AMINO ACIDS, SOURCE UNSPECIFIED
     Dates: start: 20200804
  11. PEMBROLIZUMAB. [Suspect]
     Active Substance: PEMBROLIZUMAB
     Route: 041
     Dates: start: 20201117, end: 20201117
  12. DOMPERIDONE [Concomitant]
     Active Substance: DOMPERIDONE
     Dates: start: 20190829
  13. LAMIVUDINE. [Concomitant]
     Active Substance: LAMIVUDINE
     Dates: start: 20190617
  14. VITAMIN B COMPLEX [Concomitant]
     Active Substance: CYANOCOBALAMIN\DEXPANTHENOL\NIACINAMIDE\PYRIDOXINE HYDROCHLORIDE\RIBOFLAVIN 5^-PHOSPHATE SODIUM\THIAMINE HYDROCHLORIDE\VITAMIN B COMPLEX
     Dates: start: 20190904
  15. LORATADINE. [Concomitant]
     Active Substance: LORATADINE
     Dates: start: 20200713
  16. OMEPRAZOLE. [Concomitant]
     Active Substance: OMEPRAZOLE
     Dates: start: 20100829
  17. PEMBROLIZUMAB. [Suspect]
     Active Substance: PEMBROLIZUMAB
     Indication: HEPATOCELLULAR CARCINOMA
     Route: 041
     Dates: start: 20190726, end: 20201027
  18. ENALAPRIL [Concomitant]
     Active Substance: ENALAPRIL
     Dates: start: 20200401

REACTIONS (2)
  - Cholangitis [Recovered/Resolved]
  - Malignant neoplasm progression [Recovered/Resolved]

NARRATIVE: CASE EVENT DATE: 20201207
